FAERS Safety Report 4558179-7 (Version None)
Quarter: 2005Q1

REPORT INFORMATION
  Report Type: 
  Country: None (occurrence: None)
  Receive Date: 20050103
  Receipt Date: 20040928
  Transmission Date: 20050727
  Serious: Yes (Other)
  Sender: FDA-Public Use
  Company Number: 2004UW20421

PATIENT
  Age: 64 Year
  Sex: Female
  Weight: 55.3388 kg

DRUGS (4)
  1. CRESTOR [Suspect]
     Indication: HYPERCHOLESTEROLAEMIA
     Dosage: 10 MG PO
     Route: 048
     Dates: start: 20040501
  2. ATENOLOL [Concomitant]
  3. PROTONIX [Concomitant]
  4. CELEBREX [Concomitant]

REACTIONS (6)
  - ALBUMIN GLOBULIN RATIO INCREASED [None]
  - ALOPECIA [None]
  - BLOOD ALBUMIN INCREASED [None]
  - GLOBULINS DECREASED [None]
  - MUSCULAR WEAKNESS [None]
  - NECK PAIN [None]
